FAERS Safety Report 14248330 (Version 1)
Quarter: 2017Q4

REPORT INFORMATION
  Report Type: Spontaneous
  Country: US (occurrence: US)
  Receive Date: 20171202
  Receipt Date: 20171202
  Transmission Date: 20180321
  Serious: No
  Sender: FDA-Public Use
  Company Number: None

PATIENT
  Age: 22 Year
  Sex: Female
  Weight: 77.4 kg

DRUGS (1)
  1. DEPO-PROVERA [Suspect]
     Active Substance: MEDROXYPROGESTERONE ACETATE
     Indication: CONTRACEPTION
     Route: 030
     Dates: start: 20150304, end: 20170304

REACTIONS (5)
  - Dry skin [None]
  - Fatigue [None]
  - Weight increased [None]
  - Hypothyroidism [None]
  - Depressed mood [None]

NARRATIVE: CASE EVENT DATE: 20170304
